FAERS Safety Report 6519108-X (Version None)
Quarter: 2009Q4

REPORT INFORMATION
  Report Type: 
  Country: None (occurrence: None)
  Receive Date: 20091228
  Receipt Date: 20091222
  Transmission Date: 20100525
  Serious: Yes (Life-Threatening)
  Sender: FDA-Public Use
  Company Number: JP-ELI_LILLY_AND_COMPANY-JP200912005364

PATIENT
  Age: 83 Year
  Sex: Female

DRUGS (3)
  1. ALIMTA [Suspect]
     Indication: NON-SMALL CELL LUNG CANCER
     Route: 042
  2. FOLIC ACID [Concomitant]
     Route: 065
  3. VITAMIN B-12 [Concomitant]
     Route: 065

REACTIONS (1)
  - GASTROINTESTINAL PERFORATION [None]
